FAERS Safety Report 11608414 (Version 1)
Quarter: 2015Q4

REPORT INFORMATION
  Report Type: Spontaneous
  Country: KR (occurrence: KR)
  Receive Date: 20151007
  Receipt Date: 20151007
  Transmission Date: 20160304
  Serious: No
  Sender: FDA-Public Use
  Company Number: KR-TAKEDA-2015TJP006215

PATIENT
  Sex: Male

DRUGS (2)
  1. LANSTON LFDT [Suspect]
     Active Substance: LANSOPRAZOLE
     Indication: GASTROOESOPHAGEAL REFLUX DISEASE
     Dosage: 15 MG, UNK
     Route: 065
  2. HERBAL MEDICINE [Concomitant]
     Dosage: UNK

REACTIONS (3)
  - Visual field defect [Unknown]
  - Vision blurred [Unknown]
  - Off label use [Unknown]
